FAERS Safety Report 21338802 (Version 2)
Quarter: 2022Q4

REPORT INFORMATION
  Report Type: Spontaneous
  Country: US (occurrence: US)
  Receive Date: 20220915
  Receipt Date: 20221007
  Transmission Date: 20230112
  Serious: No
  Sender: FDA-Public Use
  Company Number: US-Millicent Holdings Ltd.-MILL20220308

PATIENT
  Age: 41 Year
  Sex: Female

DRUGS (2)
  1. FEMRING [Suspect]
     Active Substance: ESTRADIOL ACETATE
     Indication: Hormone replacement therapy
     Dosage: 0.10 MG/DAY
     Route: 067
     Dates: start: 2022
  2. FEMRING [Suspect]
     Active Substance: ESTRADIOL ACETATE
     Indication: Premature menopause

REACTIONS (4)
  - Therapeutic product effect variable [Recovering/Resolving]
  - Abdominal distension [Recovering/Resolving]
  - Headache [Recovering/Resolving]
  - Product quality issue [None]

NARRATIVE: CASE EVENT DATE: 20220101
